FAERS Safety Report 9173630 (Version 2)
Quarter: 2013Q2

REPORT INFORMATION
  Report Type: Spontaneous
  Country: US (occurrence: US)
  Receive Date: 20130320
  Receipt Date: 20130522
  Transmission Date: 20140414
  Serious: No
  Sender: FDA-Public Use
  Company Number: US-009507513-1303USA008777

PATIENT
  Age: 21 Year
  Sex: Female
  Weight: 62.6 kg

DRUGS (1)
  1. IMPLANON [Suspect]
     Dosage: 1 ROD, EVERY THREE YEARS
     Route: 059
     Dates: start: 20130315

REACTIONS (2)
  - Device difficult to use [Unknown]
  - No adverse event [Unknown]
